FAERS Safety Report 5195672-0 (Version None)
Quarter: 2006Q4

REPORT INFORMATION
  Report Type: 
  Country: None (occurrence: None)
  Receive Date: 20061222
  Receipt Date: 20061222
  Transmission Date: 20070319
  Serious: Yes (Hospitalization)
  Sender: FDA-Public Use
  Company Number: None

PATIENT
  Sex: Male
  Weight: 114 kg

DRUGS (4)
  1. CYCLOPHOSPHAMIDE [Suspect]
     Dosage: 2420 MG
     Dates: start: 20060524, end: 20060524
  2. CYTARABINE [Suspect]
     Dosage: 4840 MG
     Dates: end: 20060526
  3. L-ASPARAGINASE [Suspect]
     Dosage: 43500 MG
     Dates: end: 20060615
  4. METHOTREXATE [Suspect]
     Dosage: 15 MG
     Dates: end: 20060525

REACTIONS (5)
  - BACILLUS INFECTION [None]
  - BACTERAEMIA [None]
  - FEBRILE NEUTROPENIA [None]
  - PERICARDIAL EFFUSION [None]
  - THERAPEUTIC RESPONSE DELAYED [None]
